FAERS Safety Report 7910366-3 (Version None)
Quarter: 2011Q4

REPORT INFORMATION
  Report Type: 
  Country: None (occurrence: None)
  Receive Date: 20111111
  Receipt Date: 20111109
  Transmission Date: 20120403
  Serious: Yes (Other)
  Sender: FDA-Public Use
  Company Number: US-VERTEX PHARMACEUTICALS INC.-AE-2011-002451

PATIENT
  Sex: Female
  Weight: 82.174 kg

DRUGS (5)
  1. INCIVEK [Suspect]
     Indication: HEPATITIS C
     Route: 048
     Dates: start: 20110829
  2. ZANTAC [Concomitant]
     Route: 048
  3. PEGASYS [Concomitant]
     Indication: HEPATITIS C
     Route: 058
     Dates: start: 20110829
  4. BENADRYL [Concomitant]
     Route: 048
  5. RIBAVIRIN [Concomitant]
     Indication: HEPATITIS C
     Route: 048
     Dates: start: 20110829

REACTIONS (4)
  - WHITE BLOOD CELL COUNT DECREASED [None]
  - RASH [None]
  - UPPER RESPIRATORY TRACT INFECTION [None]
  - PRURITUS [None]
